FAERS Safety Report 5755118-8 (Version None)
Quarter: 2008Q2

REPORT INFORMATION
  Report Type: 
  Country: None (occurrence: None)
  Receive Date: 20080602
  Receipt Date: 20080206
  Transmission Date: 20081010
  Serious: No
  Sender: FDA-Public Use
  Company Number: A0707834A

PATIENT
  Age: 10 Month
  Sex: Female

DRUGS (1)
  1. AUGMENTIN '125' [Suspect]
     Indication: EAR INFECTION
     Route: 048
     Dates: start: 20070401

REACTIONS (1)
  - VOMITING [None]
